FAERS Safety Report 20474025 (Version 1)
Quarter: 2022Q1

REPORT INFORMATION
  Report Type: Spontaneous
  Country: US (occurrence: None)
  Receive Date: 20220214
  Receipt Date: 20220214
  Transmission Date: 20220423
  Serious: Yes (Other)
  Sender: FDA-Public Use
  Company Number: None

PATIENT
  Sex: Female

DRUGS (2)
  1. MOTRIN [Suspect]
     Active Substance: IBUPROFEN
  2. NAPROXEN [Suspect]
     Active Substance: NAPROXEN

REACTIONS (2)
  - Abdominal discomfort [None]
  - Drug intolerance [None]
